FAERS Safety Report 16596141 (Version 1)
Quarter: 2019Q3

REPORT INFORMATION
  Report Type: Spontaneous
  Country: US (occurrence: US)
  Receive Date: 20190719
  Receipt Date: 20190719
  Transmission Date: 20191004
  Serious: Yes (Death)
  Sender: FDA-Public Use
  Company Number: US-VIFOR (INTERNATIONAL) INC.-VIT-2019-07008

PATIENT
  Sex: Female

DRUGS (1)
  1. VELPHORO [Suspect]
     Active Substance: FERRIC OXYHYDROXIDE
     Indication: HYPERPARATHYROIDISM
     Route: 048
     Dates: start: 201807

REACTIONS (3)
  - Cardiac failure [Fatal]
  - Product use in unapproved indication [Unknown]
  - Pulmonary embolism [Fatal]
